FAERS Safety Report 13138318 (Version 1)
Quarter: 2017Q1

REPORT INFORMATION
  Report Type: Spontaneous
  Country: US (occurrence: US)
  Receive Date: 20170123
  Receipt Date: 20170123
  Transmission Date: 20170428
  Serious: No
  Sender: FDA-Public Use
  Company Number: None

PATIENT
  Age: 56 Year
  Sex: Female

DRUGS (2)
  1. DESMOPRESSIN MDV 4MCG/ML [Suspect]
     Active Substance: DESMOPRESSIN ACETATE
     Indication: DIABETES INSIPIDUS
  2. DESMOPRESSIN MDV 4MCG/ML [Suspect]
     Active Substance: DESMOPRESSIN ACETATE
     Indication: BIPOLAR DISORDER

REACTIONS (1)
  - Pruritus [None]

NARRATIVE: CASE EVENT DATE: 20161101
